FAERS Safety Report 24643843 (Version 1)
Quarter: 2024Q4

REPORT INFORMATION
  Report Type: Spontaneous
  Country: CN (occurrence: CN)
  Receive Date: 20241120
  Receipt Date: 20241120
  Transmission Date: 20250114
  Serious: Yes (Life-Threatening, Hospitalization)
  Sender: TEVA
  Company Number: CN-TEVA-VS-3266152

PATIENT
  Age: 74 Year
  Sex: Male
  Weight: 63 kg

DRUGS (3)
  1. BENDAMUSTINE [Suspect]
     Active Substance: BENDAMUSTINE
     Indication: Leukaemia
     Dosage: HYDROCHLORIDE, BR CHEMOTHERAPY: RITUXIMAB 600MG D0 + BENDAMUSTINE 140MG, D1-2 Q28D
     Route: 041
     Dates: start: 20241014, end: 20241015
  2. RITUXIMAB [Suspect]
     Active Substance: RITUXIMAB
     Indication: Chronic lymphocytic leukaemia
     Dosage: BR CHEMOTHERAPY: RITUXIMAB 600MG D0 + BENDAMUSTINE 140MG, D1-2 Q28D
     Route: 041
     Dates: start: 20241013, end: 20241013
  3. RITUXIMAB [Suspect]
     Active Substance: RITUXIMAB
     Indication: Chronic lymphocytic leukaemia
     Dosage: BR CHEMOTHERAPY: RITUXIMAB 600MG D0 + BENDAMUSTINE 140MG, D1-2 Q28D
     Route: 041
     Dates: start: 20241013, end: 20241013

REACTIONS (2)
  - Jaundice [Recovering/Resolving]
  - Hepatic function abnormal [Recovering/Resolving]

NARRATIVE: CASE EVENT DATE: 20241026
